FAERS Safety Report 7444142-5 (Version None)
Quarter: 2011Q2

REPORT INFORMATION
  Report Type: 
  Country: None (occurrence: None)
  Receive Date: 20110419
  Receipt Date: 20110404
  Transmission Date: 20111010
  Serious: Yes (Hospitalization)
  Sender: FDA-Public Use
  Company Number: IDA-00526

PATIENT
  Age: 42 Year
  Sex: Female

DRUGS (2)
  1. PROPRANOLOL [Suspect]
     Dosage: 1 DF DAILY ORAL FORMULATION: UNKNOWN
     Dates: start: 20101006, end: 20101025
  2. METHIMAZOLE [Suspect]
     Dosage: 1 DF BID ORAL FORMULATION: UNKNOWN
     Dates: start: 20101006, end: 20101025

REACTIONS (5)
  - LEUKOPENIA [None]
  - PAROTITIS [None]
  - NEUTROPHIL COUNT DECREASED [None]
  - TOOTHACHE [None]
  - HYPOTENSION [None]
